FAERS Safety Report 7403643-6 (Version None)
Quarter: 2011Q2

REPORT INFORMATION
  Report Type: 
  Country: None (occurrence: None)
  Receive Date: 20110408
  Receipt Date: 20110328
  Transmission Date: 20111010
  Serious: Yes (Other)
  Sender: FDA-Public Use
  Company Number: PHHY2011US09506

PATIENT
  Sex: Female

DRUGS (2)
  1. GILENYA [Suspect]
     Indication: MULTIPLE SCLEROSIS
     Dosage: 0.5 MG, QD
     Route: 048
     Dates: start: 20101130
  2. ANTIDEPRESSANTS [Concomitant]
     Dosage: UNK

REACTIONS (5)
  - PARANOIA [None]
  - FURUNCLE [None]
  - FATIGUE [None]
  - MOOD SWINGS [None]
  - GAIT DISTURBANCE [None]
